FAERS Safety Report 10476318 (Version 1)
Quarter: 2014Q3

REPORT INFORMATION
  Report Type: Spontaneous
  Country: DE (occurrence: DE)
  Receive Date: 20140925
  Receipt Date: 20140925
  Transmission Date: 20150326
  Serious: Yes (Life-Threatening, Hospitalization, Other)
  Sender: FDA-Public Use
  Company Number: DE-ASTRAZENECA-2014SE70505

PATIENT
  Age: 25 Year
  Sex: Female

DRUGS (5)
  1. LYOGEN DEPOT [Concomitant]
     Indication: SCHIZOPHRENIA, PARANOID TYPE
     Route: 030
  2. HUMALOG [Concomitant]
     Active Substance: INSULIN LISPRO
     Indication: GESTATIONAL DIABETES
     Dosage: 4 (IE/D )
     Route: 058
     Dates: start: 20130301, end: 20130326
  3. SEROQUEL [Suspect]
     Active Substance: QUETIAPINE FUMARATE
     Indication: DEPRESSION
     Route: 048
  4. SEROQUEL [Suspect]
     Active Substance: QUETIAPINE FUMARATE
     Indication: DEPRESSION
     Dosage: BLOOD CONCENTRATION FROM FEBR, 2ND 2013: QUETIAPINE 1180 UG/L; NORQUETIAPINE 3170 UG/L
     Route: 048
     Dates: start: 20130202, end: 20130202
  5. FOLICOMBIN [Concomitant]
     Indication: VITAMIN SUPPLEMENTATION
     Route: 048

REACTIONS (3)
  - Suicide attempt [Unknown]
  - Rhabdomyolysis [Recovered/Resolved]
  - Exposure during pregnancy [Unknown]

NARRATIVE: CASE EVENT DATE: 20120615
